FAERS Safety Report 10087001 (Version 2)
Quarter: 2014Q2

REPORT INFORMATION
  Report Type: Report from Study
  Country: CH (occurrence: CH)
  Receive Date: 20140418
  Receipt Date: 20140428
  Transmission Date: 20141212
  Serious: Yes (Hospitalization)
  Sender: FDA-Public Use
  Company Number: CH-BRISTOL-MYERS SQUIBB COMPANY-20651675

PATIENT
  Age: 55 Year
  Sex: Female

DRUGS (3)
  1. CETUXIMAB [Suspect]
     Indication: NON-SMALL CELL LUNG CANCER
     Dosage: INF,1DF:400UNITS NOS,MOSE RECENT DOSE: 01APR14
     Route: 042
     Dates: start: 20140218
  2. CISPLATIN [Suspect]
     Indication: NON-SMALL CELL LUNG CANCER
     Dosage: INF,1DF:80UNITS NOS,MOSE RECENT DOSE: 01APR14
     Route: 042
     Dates: start: 20140218
  3. DOCETAXEL [Suspect]
     Indication: NON-SMALL CELL LUNG CANCER
     Dosage: INF,1DF:135UNITS NOS,MOSE RECENT DOSE: 01APR14
     Route: 042
     Dates: start: 20140218

REACTIONS (1)
  - Hypotension [Recovered/Resolved]
